FAERS Safety Report 9301056 (Version 8)
Quarter: 2013Q4

REPORT INFORMATION
  Report Type: Spontaneous
  Country: US (occurrence: US)
  Receive Date: 20130521
  Receipt Date: 20131122
  Transmission Date: 20140711
  Serious: Yes (Hospitalization, Other)
  Sender: FDA-Public Use
  Company Number: US-PFIZER INC-2013152357

PATIENT
  Age: 74 Year
  Sex: Female

DRUGS (9)
  1. SUTENT [Suspect]
     Indication: METASTATIC RENAL CELL CARCINOMA
     Dosage: 50 MG, 1X/DAY
     Route: 048
     Dates: start: 20130516
  2. SUTENT [Suspect]
     Dosage: 37.5 MG, 1X/DAY (4 OUT OF 6 WEEKS)
  3. SUTENT [Suspect]
     Dosage: 25 MG, CYCLIC
     Dates: end: 20131113
  4. PROZAC [Concomitant]
     Dosage: UNK
  5. PREMPRO [Concomitant]
     Dosage: UNK
  6. DIOVAN [Concomitant]
     Dosage: UNK
  7. IMODIUM [Concomitant]
     Dosage: UNK
  8. LIDOCAINE [Concomitant]
     Dosage: UNK
  9. ZOFRAN [Concomitant]
     Dosage: UNK

REACTIONS (27)
  - Mucosal inflammation [Recovered/Resolved]
  - Candida infection [Recovered/Resolved]
  - Dehydration [Recovered/Resolved]
  - Hypophosphataemia [Recovered/Resolved]
  - Renal failure [Unknown]
  - Thrombocytopenia [Unknown]
  - Fatigue [Recovered/Resolved]
  - Nausea [Recovered/Resolved]
  - Stomatitis [Recovered/Resolved]
  - Dysphagia [Recovered/Resolved]
  - Diarrhoea [Recovered/Resolved]
  - Retching [Recovered/Resolved]
  - Dysgeusia [Recovered/Resolved]
  - Decreased appetite [Recovered/Resolved]
  - Somnolence [Recovered/Resolved]
  - Gastrointestinal tract irritation [Recovered/Resolved]
  - Diarrhoea [Recovered/Resolved]
  - Anorectal discomfort [Recovered/Resolved]
  - Skin haemorrhage [Recovered/Resolved]
  - Weight decreased [Recovered/Resolved]
  - Back pain [Unknown]
  - Gingival pain [Unknown]
  - Gingival swelling [Unknown]
  - Glossodynia [Unknown]
  - Cough [Unknown]
  - Disease progression [Unknown]
  - Metastatic renal cell carcinoma [Unknown]
